FAERS Safety Report 6788804-1 (Version None)
Quarter: 2010Q2

REPORT INFORMATION
  Report Type: 
  Country: None (occurrence: None)
  Receive Date: 20100623
  Receipt Date: 20080729
  Transmission Date: 20101027
  Serious: Yes (Other)
  Sender: FDA-Public Use
  Company Number: US-PFIZER INC-2008021319

PATIENT
  Sex: Female
  Weight: 64 kg

DRUGS (4)
  1. DEPO-SUBQ PROVERA 104 [Suspect]
     Indication: CONTRACEPTION
     Dosage: FIRST INJECTION
     Route: 058
     Dates: start: 20060201, end: 20060201
  2. DEPO-SUBQ PROVERA 104 [Suspect]
     Route: 058
     Dates: start: 20071127, end: 20071127
  3. CALCIUM CARBONATE [Concomitant]
  4. MEDROXYPROGESTERONE ACETATE [Concomitant]
     Route: 030

REACTIONS (2)
  - INJECTION SITE NODULE [None]
  - INJECTION SITE STREAKING [None]
